FAERS Safety Report 8137440-3 (Version None)
Quarter: 2012Q1

REPORT INFORMATION
  Report Type: 
  Country: None (occurrence: None)
  Receive Date: 20120103
  Receipt Date: 20110906
  Transmission Date: 20120608
  Serious: No
  Sender: FDA-Public Use
  Company Number: AE-2011-001359

PATIENT
  Age: 62 Year
  Sex: Male
  Weight: 71.2147 kg

DRUGS (8)
  1. ZETIA [Concomitant]
  2. DIAZEPAM [Concomitant]
  3. BACLOFEN [Concomitant]
  4. INCIVEK [Suspect]
     Dosage: 2250 (750 MG, 1 IN 8 HR), ORAL
     Route: 048
     Dates: start: 20110818
  5. PEGASYS [Concomitant]
  6. ATENOLOL [Concomitant]
  7. COPEGUS [Concomitant]
  8. WARFARIN SODIUM [Concomitant]

REACTIONS (1)
  - PLATELET COUNT DECREASED [None]
